FAERS Safety Report 5864296-1 (Version None)
Quarter: 2008Q3

REPORT INFORMATION
  Report Type: 
  Country: None (occurrence: None)
  Receive Date: 20080829
  Receipt Date: 20080625
  Transmission Date: 20090109
  Serious: No
  Sender: FDA-Public Use
  Company Number: US-ABBOTT-08P-163-0459380-00

PATIENT
  Sex: Female
  Weight: 78.542 kg

DRUGS (2)
  1. SIMCOR [Suspect]
     Indication: BLOOD CHOLESTEROL INCREASED
     Dosage: 500/20 MG, 1 IN 1 D
     Route: 048
     Dates: start: 20080611, end: 20080618
  2. SIMCOR [Suspect]
     Dosage: 1000/20 MG AT BEDTIME
     Dates: start: 20080618

REACTIONS (4)
  - BURNING SENSATION [None]
  - FLUSHING [None]
  - GASTROOESOPHAGEAL REFLUX DISEASE [None]
  - PRURITUS [None]
